FAERS Safety Report 7003733-6 (Version None)
Quarter: 2010Q3

REPORT INFORMATION
  Report Type: 
  Country: None (occurrence: None)
  Receive Date: 20100920
  Receipt Date: 20091207
  Transmission Date: 20110219
  Serious: No
  Sender: FDA-Public Use
  Company Number: US-WYE-H12225109

PATIENT
  Sex: Female
  Weight: 54.48 kg

DRUGS (3)
  1. PRISTIQ [Suspect]
     Indication: MAJOR DEPRESSION
     Dosage: 50 MG EVERY 1 TOT
     Route: 048
     Dates: start: 20091021, end: 20091022
  2. XANAX [Concomitant]
  3. COPAXONE [Concomitant]

REACTIONS (1)
  - MYDRIASIS [None]
